FAERS Safety Report 25346659 (Version 1)
Quarter: 2025Q2

REPORT INFORMATION
  Report Type: Spontaneous
  Country: CA (occurrence: CA)
  Receive Date: 20250522
  Receipt Date: 20250522
  Transmission Date: 20250716
  Serious: Yes (Hospitalization)
  Sender: PFIZER
  Company Number: CA-PFIZER INC-202500104988

PATIENT
  Age: 79 Year
  Sex: Male
  Weight: 82 kg

DRUGS (11)
  1. FRAGMIN [Suspect]
     Active Substance: DALTEPARIN SODIUM
     Indication: Thrombosis prophylaxis
     Dosage: 7500.0 IU, 2X/DAY
     Route: 058
  2. ACETAMINOPHEN [Concomitant]
     Active Substance: ACETAMINOPHEN
  3. DIMENHYDRINATE [Concomitant]
     Active Substance: DIMENHYDRINATE
  4. FUROSEMIDE [Concomitant]
     Active Substance: FUROSEMIDE
  5. HYDROMORPHONE [Concomitant]
     Active Substance: HYDROMORPHONE
  6. ONDANSETRON [Concomitant]
     Active Substance: ONDANSETRON
  7. PIPERACILLIN SODIUM\TAZOBACTAM SODIUM [Concomitant]
     Active Substance: PIPERACILLIN SODIUM\TAZOBACTAM SODIUM
  8. POLYETHYLENE GLYCOLS [Concomitant]
     Active Substance: POLYETHYLENE GLYCOLS
  9. SPIRONOLACTONE [Concomitant]
     Active Substance: SPIRONOLACTONE
  10. VANCOMYCIN [Concomitant]
     Active Substance: VANCOMYCIN
  11. VITAMIN K [Concomitant]
     Active Substance: PHYTONADIONE

REACTIONS (3)
  - Gastric polyps [Recovered/Resolved]
  - Ischaemic gastritis [Recovered/Resolved]
  - Upper gastrointestinal haemorrhage [Recovered/Resolved]
